FAERS Safety Report 24186098 (Version 1)
Quarter: 2024Q3

REPORT INFORMATION
  Report Type: Report from Study
  Country: US (occurrence: US)
  Receive Date: 20240808
  Receipt Date: 20240808
  Transmission Date: 20241016
  Serious: Yes (Other)
  Sender: ABBVIE
  Company Number: US-ABBVIE-5863079

PATIENT
  Sex: Female

DRUGS (1)
  1. HUMIRA [Suspect]
     Active Substance: ADALIMUMAB
     Indication: Hidradenitis
     Route: 058
     Dates: start: 20230516, end: 202405

REACTIONS (3)
  - In vitro fertilisation [Not Recovered/Not Resolved]
  - Maternal exposure during pregnancy [Unknown]
  - Biochemical pregnancy [Unknown]

NARRATIVE: CASE EVENT DATE: 20240101
